FAERS Safety Report 8425205-4 (Version None)
Quarter: 2012Q2

REPORT INFORMATION
  Report Type: 
  Country: None (occurrence: None)
  Receive Date: 20120611
  Receipt Date: 20120605
  Transmission Date: 20120825
  Serious: Yes (Other)
  Sender: FDA-Public Use
  Company Number: US-BAYER-2012-056134

PATIENT
  Age: 32 Year
  Sex: Female

DRUGS (3)
  1. CIPROFLOXACIN HCL [Suspect]
     Indication: PYELONEPHRITIS
     Dosage: 400 MG, BID
     Route: 042
  2. CIPROFLOXACIN HCL [Interacting]
     Indication: SEPSIS
  3. TIZANIDINE [Interacting]
     Indication: MULTIPLE SCLEROSIS
     Dosage: 4 MG, QD
     Route: 048

REACTIONS (3)
  - HYPOTENSION [None]
  - BRADYCARDIA [None]
  - HYPOXIA [None]
